FAERS Safety Report 6113230-8 (Version None)
Quarter: 2009Q1

REPORT INFORMATION
  Report Type: 
  Country: None (occurrence: None)
  Receive Date: 20090312
  Receipt Date: 20090310
  Transmission Date: 20090719
  Serious: Yes (Death, Hospitalization)
  Sender: FDA-Public Use
  Company Number: US-WYE-H08529509

PATIENT
  Age: 31 Year
  Sex: Female

DRUGS (2)
  1. TEMSIROLIMUS [Suspect]
     Indication: GLIOBLASTOMA MULTIFORME
     Route: 042
     Dates: start: 20080328, end: 20080519
  2. ERLOTINIB [Suspect]
     Indication: GLIOBLASTOMA MULTIFORME
     Route: 048
     Dates: start: 20080329, end: 20080525

REACTIONS (3)
  - DEATH [None]
  - INTRACRANIAL HYPOTENSION [None]
  - WOUND INFECTION [None]
